FAERS Safety Report 6051961-9 (Version None)
Quarter: 2009Q1

REPORT INFORMATION
  Report Type: 
  Country: None (occurrence: None)
  Receive Date: 20090121
  Receipt Date: 20090121
  Transmission Date: 20090719
  Serious: No
  Sender: FDA-Public Use
  Company Number: None

PATIENT
  Sex: Male

DRUGS (2)
  1. BUPROPION HCL [Suspect]
     Indication: DEPRESSION
     Dosage: 100 MG, 75 MG, DAILY ORAL
     Route: 048
     Dates: start: 20080701, end: 20090127
  2. BUPROPION HCL [Suspect]
     Dosage: 200 MG

REACTIONS (5)
  - ANOREXIA [None]
  - DEPRESSIVE SYMPTOM [None]
  - HUNGER [None]
  - IRRITABILITY [None]
  - THERAPEUTIC RESPONSE UNEXPECTED WITH DRUG SUBSTITUTION [None]
